FAERS Safety Report 20186805 (Version 1)
Quarter: 2021Q4

REPORT INFORMATION
  Report Type: Spontaneous
  Country: JP (occurrence: JP)
  Receive Date: 20211215
  Receipt Date: 20211215
  Transmission Date: 20220303
  Serious: Yes (Hospitalization)
  Sender: FDA-Public Use
  Company Number: JP-BAYER-2021A265867

PATIENT
  Age: 81 Year
  Sex: Male
  Weight: 62.5 kg

DRUGS (6)
  1. XOFIGO [Suspect]
     Active Substance: RADIUM RA-223 DICHLORIDE
     Indication: Hormone-refractory prostate cancer
     Dosage: 3.2MBQ, ONCE
     Route: 042
     Dates: start: 20180523, end: 20180523
  2. XOFIGO [Suspect]
     Active Substance: RADIUM RA-223 DICHLORIDE
     Indication: Metastases to bone
     Dosage: 3.28MBQ, ONCE
     Route: 042
     Dates: start: 20180620, end: 20180620
  3. XOFIGO [Suspect]
     Active Substance: RADIUM RA-223 DICHLORIDE
     Indication: Hormone-refractory prostate cancer
     Dosage: 3.22MBQ, ONCE
     Route: 042
     Dates: start: 20180718, end: 20180718
  4. XOFIGO [Suspect]
     Active Substance: RADIUM RA-223 DICHLORIDE
     Indication: Hormone-refractory prostate cancer
     Dosage: 3.04MBQ, ONCE
     Route: 042
     Dates: start: 20180912, end: 20180912
  5. XOFIGO [Suspect]
     Active Substance: RADIUM RA-223 DICHLORIDE
     Indication: Hormone-refractory prostate cancer
     Dosage: 2.7MBQ, ONCE
     Route: 042
     Dates: start: 20181010, end: 20181010
  6. XOFIGO [Suspect]
     Active Substance: RADIUM RA-223 DICHLORIDE
     Indication: Hormone-refractory prostate cancer
     Dosage: 2.79MBQ, ONCE
     Route: 042
     Dates: start: 20181121, end: 20181121

REACTIONS (1)
  - Lumbar vertebral fracture [Recovered/Resolved]

NARRATIVE: CASE EVENT DATE: 20180821
